FAERS Safety Report 13414583 (Version 2)
Quarter: 2017Q2

REPORT INFORMATION
  Report Type: Spontaneous
  Country: TR (occurrence: TR)
  Receive Date: 20170407
  Receipt Date: 20170411
  Transmission Date: 20170830
  Serious: Yes (Other)
  Sender: FDA-Public Use
  Company Number: PHHY2017TR051370

PATIENT
  Age: 3 Year
  Sex: Male

DRUGS (1)
  1. RIVASTIGMINE. [Suspect]
     Active Substance: RIVASTIGMINE
     Indication: PRODUCT USED FOR UNKNOWN INDICATION
     Dosage: 12 MG, UNK
     Route: 065

REACTIONS (14)
  - Somnolence [Unknown]
  - Neutrophilia [Unknown]
  - Salivary hypersecretion [Unknown]
  - Lacrimation increased [Unknown]
  - Hyporesponsive to stimuli [Unknown]
  - Hyperglycaemia [Unknown]
  - Toxicity to various agents [Unknown]
  - Miosis [Unknown]
  - Leukocytosis [Unknown]
  - Hyperhidrosis [Unknown]
  - Cholinergic syndrome [Recovering/Resolving]
  - Rales [Unknown]
  - Increased bronchial secretion [Unknown]
  - Asthenia [Unknown]
